FAERS Safety Report 6882170-9 (Version None)
Quarter: 2010Q3

REPORT INFORMATION
  Report Type: 
  Country: None (occurrence: None)
  Receive Date: 20100727
  Receipt Date: 20100727
  Transmission Date: 20110219
  Serious: No
  Sender: FDA-Public Use
  Company Number: None

PATIENT
  Age: 72 Year
  Sex: Female

DRUGS (1)
  1. GABAPENTIN [Suspect]
     Indication: NEUROPATHY PERIPHERAL
     Dosage: 1 TABLET TID
     Dates: start: 20100614, end: 20100712

REACTIONS (2)
  - PRODUCT TASTE ABNORMAL [None]
  - TABLET ISSUE [None]
